FAERS Safety Report 20198497 (Version 1)
Quarter: 2021Q4

REPORT INFORMATION
  Report Type: Spontaneous
  Country: US (occurrence: None)
  Receive Date: 20211216
  Receipt Date: 20211216
  Transmission Date: 20220303
  Serious: No
  Sender: FDA-Public Use
  Company Number: None

PATIENT
  Sex: Female

DRUGS (1)
  1. CAPECITABINE [Suspect]
     Active Substance: CAPECITABINE
     Indication: Breast cancer
     Dosage: FREQUENCY : TWICE A DAY FOR 14 DAY?
     Route: 048
     Dates: start: 20210512

REACTIONS (3)
  - Headache [None]
  - Vision blurred [None]
  - Loss of personal independence in daily activities [None]
